FAERS Safety Report 25331171 (Version 5)
Quarter: 2025Q3

REPORT INFORMATION
  Report Type: Report from Study
  Country: US (occurrence: US)
  Receive Date: 20250519
  Receipt Date: 20250814
  Transmission Date: 20251021
  Serious: Yes (Hospitalization, Other)
  Sender: PFIZER
  Company Number: US-PFIZER INC-202500071350

PATIENT
  Age: 23 Year
  Sex: Female

DRUGS (5)
  1. TUKYSA [Suspect]
     Active Substance: TUCATINIB
     Indication: Breast cancer female
     Dosage: 300MG BY MOUTH TWICE DAILY
     Route: 048
     Dates: start: 20250321
  2. TUKYSA [Suspect]
     Active Substance: TUCATINIB
     Dosage: 150 MG, 2X/DAY
     Dates: start: 20250321
  3. TUKYSA [Suspect]
     Active Substance: TUCATINIB
     Dosage: 150MG BY MOUTH DAILY
     Route: 048
     Dates: start: 20250321
  4. TUKYSA [Suspect]
     Active Substance: TUCATINIB
     Dates: start: 20250421
  5. TUKYSA [Suspect]
     Active Substance: TUCATINIB
     Dosage: ONE TABLET ONCE DAILY
     Route: 048
     Dates: start: 20250619

REACTIONS (15)
  - Constipation [Not Recovered/Not Resolved]
  - Diarrhoea [Not Recovered/Not Resolved]
  - Blood magnesium decreased [Not Recovered/Not Resolved]
  - Blood potassium decreased [Not Recovered/Not Resolved]
  - Hypotension [Not Recovered/Not Resolved]
  - Seizure [Not Recovered/Not Resolved]
  - Off label use [Unknown]
  - Dehydration [Not Recovered/Not Resolved]
  - Skin discolouration [Not Recovered/Not Resolved]
  - Weight increased [Unknown]
  - Hypertension [Unknown]
  - Malaise [Not Recovered/Not Resolved]
  - Palpitations [Unknown]
  - Dizziness [Unknown]
  - Appetite disorder [Unknown]

NARRATIVE: CASE EVENT DATE: 20250301
